FAERS Safety Report 11374973 (Version 3)
Quarter: 2016Q3

REPORT INFORMATION
  Report Type: Spontaneous
  Country: IT (occurrence: IT)
  Receive Date: 20150813
  Receipt Date: 20160906
  Transmission Date: 20161109
  Serious: Yes (Other)
  Sender: FDA-Public Use
  Company Number: IT-ASTRAZENECA-2014SE45527

PATIENT
  Age: 65 Year
  Sex: Female

DRUGS (7)
  1. DRUGS USED IN CHEMOTHERAPY [Concomitant]
     Indication: CHEMOTHERAPY
  2. RANIBEN [Concomitant]
     Indication: GASTROOESOPHAGEAL REFLUX DISEASE
     Dosage: 300.0MG UNKNOWN
  3. ANTINEOPLASTIC AGENTS [Concomitant]
     Active Substance: UNSPECIFIED INGREDIENT
  4. RANIBEN [Concomitant]
     Indication: GASTROOESOPHAGEAL REFLUX DISEASE
     Dosage: 300.0MG UNKNOWN
     Dates: start: 1970
  5. VITAMIN C [Concomitant]
     Active Substance: ASCORBIC ACID
  6. ARIMIDEX [Suspect]
     Active Substance: ANASTROZOLE
     Indication: BREAST CANCER
     Route: 048
     Dates: start: 201404
  7. ARIMIDEX [Suspect]
     Active Substance: ANASTROZOLE
     Indication: BREAST CANCER
     Route: 048
     Dates: start: 201404

REACTIONS (17)
  - Chronic gastritis [Unknown]
  - Breast haemorrhage [Recovered/Resolved]
  - Hypoaesthesia [Unknown]
  - Balance disorder [Not Recovered/Not Resolved]
  - Gallbladder polyp [Unknown]
  - Trigger finger [Recovered/Resolved]
  - Cataract [Unknown]
  - Bone formation increased [Unknown]
  - Asthenia [Unknown]
  - Weight decreased [Unknown]
  - Vitreous detachment [Unknown]
  - Circumstance or information capable of leading to medication error [Not Recovered/Not Resolved]
  - Hormone level abnormal [Unknown]
  - Eye disorder [Unknown]
  - Confusional state [Not Recovered/Not Resolved]
  - Helicobacter infection [Unknown]
  - Hair colour changes [Unknown]

NARRATIVE: CASE EVENT DATE: 2014
